FAERS Safety Report 8610751-0 (Version None)
Quarter: 2012Q3

REPORT INFORMATION
  Report Type: 
  Country: None (occurrence: None)
  Receive Date: 20120822
  Receipt Date: 20120813
  Transmission Date: 20120928
  Serious: Yes (Other)
  Sender: FDA-Public Use
  Company Number: US-JNJFOC-20120807454

PATIENT
  Sex: Female
  Weight: 102.97 kg

DRUGS (5)
  1. REMICADE [Suspect]
     Indication: COLITIS ULCERATIVE
     Route: 042
  2. SIMVASTATIN [Concomitant]
     Route: 065
  3. ACCUPRIL [Concomitant]
     Route: 065
  4. REMICADE [Suspect]
     Route: 042
     Dates: start: 20120601
  5. MULTI-VITAMINS [Concomitant]
     Route: 065

REACTIONS (2)
  - HERPES ZOSTER [None]
  - POST HERPETIC NEURALGIA [None]
